FAERS Safety Report 12353202 (Version 1)
Quarter: 2016Q2

REPORT INFORMATION
  Report Type: Other
  Country: CN (occurrence: CN)
  Receive Date: 20160510
  Receipt Date: 20160510
  Transmission Date: 20160815
  Serious: Yes (Hospitalization)
  Sender: FDA-Public Use
  Company Number: CN-ENDO PHARMACEUTICALS INC-2016-002953

PATIENT
  Age: 56 Year
  Sex: Female

DRUGS (1)
  1. LETROZOLE TABLETS 2.5MG [Suspect]
     Active Substance: LETROZOLE
     Indication: BREAST CANCER
     Route: 065
     Dates: start: 2014, end: 20151011

REACTIONS (1)
  - Carotid artery occlusion [Unknown]

NARRATIVE: CASE EVENT DATE: 201510
